FAERS Safety Report 4879793-5 (Version None)
Quarter: 2006Q1

REPORT INFORMATION
  Report Type: 
  Country: None (occurrence: None)
  Receive Date: 20060113
  Receipt Date: 20060111
  Transmission Date: 20060701
  Serious: Yes (Hospitalization)
  Sender: FDA-Public Use
  Company Number: 2006/7

PATIENT
  Age: 96 Year
  Sex: Male

DRUGS (8)
  1. AMOXICILLINE RPG [Suspect]
     Indication: SUPERINFECTION LUNG
     Dosage: 1G TWICE PER DAY
     Route: 048
     Dates: start: 20051219, end: 20051221
  2. BACTRIM DS [Suspect]
     Indication: SUPERINFECTION LUNG
     Dosage: 1UNIT TWICE PER DAY
     Route: 048
     Dates: start: 20051215, end: 20051221
  3. URSOLVAN [Concomitant]
  4. BUFLOMEDIL [Concomitant]
  5. PERMIXON [Concomitant]
  6. TARDYFERON [Concomitant]
  7. OLMIFON [Concomitant]
  8. FORTIMEL [Concomitant]

REACTIONS (5)
  - CONFUSIONAL STATE [None]
  - CONVULSION [None]
  - HYPERTONIA [None]
  - NERVE STIMULATION TEST ABNORMAL [None]
  - RENAL FAILURE [None]
